FAERS Safety Report 10913053 (Version 1)
Quarter: 2015Q1

REPORT INFORMATION
  Report Type: Spontaneous
  Country: FR (occurrence: None)
  Receive Date: 20150310
  Receipt Date: 20150310
  Transmission Date: 20150721
  Serious: Yes (Hospitalization, Other)
  Sender: FDA-Public Use
  Company Number: 2015RN000013

PATIENT
  Age: 17 Year
  Sex: Male

DRUGS (1)
  1. ZOVIRAX [Suspect]
     Active Substance: ACYCLOVIR
     Indication: PRODUCT USED FOR UNKNOWN INDICATION
     Dosage: 5 DF, UNK, ORAL
     Route: 048
     Dates: start: 201412, end: 201501

REACTIONS (7)
  - Headache [None]
  - Chromaturia [None]
  - Tubulointerstitial nephritis [None]
  - Abdominal pain [None]
  - Asthenia [None]
  - Chronic kidney disease [None]
  - Diarrhoea [None]

NARRATIVE: CASE EVENT DATE: 201501
